FAERS Safety Report 6300959-1 (Version None)
Quarter: 2009Q3

REPORT INFORMATION
  Report Type: 
  Country: None (occurrence: None)
  Receive Date: 20090807
  Receipt Date: 20090729
  Transmission Date: 20100115
  Serious: Yes (Hospitalization, Other)
  Sender: FDA-Public Use
  Company Number: JP-JNJFOC-20090709868

PATIENT
  Age: 22 Year
  Sex: Female

DRUGS (6)
  1. RISPERDAL [Suspect]
     Route: 048
  2. RISPERDAL [Suspect]
     Indication: SCHIZOPHRENIA
     Route: 048
  3. AKINETON [Concomitant]
     Indication: AKATHISIA
     Route: 048
  4. VEGETAMIN-A [Concomitant]
     Indication: INSOMNIA
     Route: 048
  5. BENZALIN [Concomitant]
     Indication: INSOMNIA
     Route: 048
  6. DEPAKENE [Concomitant]
     Indication: DRUG USE FOR UNKNOWN INDICATION
     Route: 048

REACTIONS (9)
  - ABNORMAL BEHAVIOUR [None]
  - AKATHISIA [None]
  - DELUSION [None]
  - DRY MOUTH [None]
  - HALLUCINATION [None]
  - IMPULSIVE BEHAVIOUR [None]
  - IRRITABILITY [None]
  - POLYDIPSIA [None]
  - SOLILOQUY [None]
